FAERS Safety Report 10613780 (Version 1)
Quarter: 2014Q4

REPORT INFORMATION
  Report Type: Spontaneous
  Country: AR (occurrence: AR)
  Receive Date: 20141128
  Receipt Date: 20141128
  Transmission Date: 20150529
  Serious: Yes (Hospitalization, Other)
  Sender: FDA-Public Use
  Company Number: AR-PFIZER INC-2014326076

PATIENT
  Age: 68 Year
  Sex: Male

DRUGS (2)
  1. KETOROLAC TROMETHAMINE. [Concomitant]
     Active Substance: KETOROLAC TROMETHAMINE
     Dosage: 37.5 MG, UNK
  2. SUTENT [Suspect]
     Active Substance: SUNITINIB MALATE
     Indication: RENAL CANCER
     Dosage: 37.5 MG, CYCLIC (28 DAYS ON AND 14 DAYS OFF)

REACTIONS (4)
  - Urethral obstruction [Recovering/Resolving]
  - Pain in extremity [Unknown]
  - Asthenia [Unknown]
  - Spinal pain [Unknown]
